FAERS Safety Report 4359584-4 (Version None)
Quarter: 2004Q2

REPORT INFORMATION
  Report Type: 
  Country: None (occurrence: None)
  Receive Date: 20040512
  Receipt Date: 20040430
  Transmission Date: 20050107
  Serious: No
  Sender: FDA-Public Use
  Company Number: GBS040314605

PATIENT
  Age: 20 Year
  Sex: Male

DRUGS (9)
  1. XIGRIS [Suspect]
     Indication: SEPSIS
     Dates: start: 20040312, end: 20040316
  2. CEFUROXIME [Concomitant]
  3. METRONIDAZOLE [Concomitant]
  4. NORADRENALINE [Concomitant]
  5. MIDAZOLAM HCL [Concomitant]
  6. MORPHINE [Concomitant]
  7. PROPOFOL [Concomitant]
  8. TINZAPARIN [Concomitant]
  9. RANITIDINE [Concomitant]

REACTIONS (1)
  - THROMBOCYTOPENIA [None]
